FAERS Safety Report 20756617 (Version 2)
Quarter: 2025Q4

REPORT INFORMATION
  Report Type: Spontaneous
  Country: US (occurrence: US)
  Receive Date: 20220427
  Receipt Date: 20251218
  Transmission Date: 20260118
  Serious: Yes (Death, Other)
  Sender: MYLAN
  Company Number: US-MYLANLABS-2022M1030867

PATIENT
  Age: 74 Year
  Sex: Male

DRUGS (2)
  1. ETOPOSIDE [Suspect]
     Active Substance: ETOPOSIDE
     Indication: Neuroendocrine carcinoma metastatic
     Dosage: UNK, RECEIVED 2 CYCLES.
  2. CARBOPLATIN [Suspect]
     Active Substance: CARBOPLATIN
     Indication: Neuroendocrine carcinoma metastatic
     Dosage: UNK, RECEIVED 2 CYCLES.

REACTIONS (4)
  - Disease progression [Fatal]
  - Drug ineffective for unapproved indication [Fatal]
  - Pancytopenia [Unknown]
  - Off label use [Unknown]
